FAERS Safety Report 7967734-3 (Version None)
Quarter: 2011Q4

REPORT INFORMATION
  Report Type: 
  Country: None (occurrence: None)
  Receive Date: 20111209
  Receipt Date: 20111209
  Transmission Date: 20120403
  Serious: No
  Sender: FDA-Public Use
  Company Number: None

PATIENT
  Sex: Male
  Weight: 88.904 kg

DRUGS (1)
  1. MIDAZOLAM [Suspect]
     Indication: ANAESTHESIA
     Dosage: 4MG
     Route: 042
     Dates: start: 20100211, end: 20100211

REACTIONS (2)
  - ATRIAL FIBRILLATION [None]
  - AMNESIA [None]
